FAERS Safety Report 23718122 (Version 1)
Quarter: 2024Q2

REPORT INFORMATION
  Report Type: Spontaneous
  Country: US (occurrence: US)
  Receive Date: 20240408
  Receipt Date: 20240408
  Transmission Date: 20240716
  Serious: No
  Sender: FDA-Public Use
  Company Number: US-VANTIVE-2024VAN016050

PATIENT
  Age: 55 Year
  Sex: Male

DRUGS (1)
  1. DIANEAL FOR PERITONEAL DIALYSIS [Suspect]
     Active Substance: ANHYDROUS DEXTROSE\CALCIUM CHLORIDE\MAGNESIUM CHLORIDE\SODIUM CHLORIDE\SODIUM LACTATE
     Route: 033

REACTIONS (5)
  - Dizziness [Unknown]
  - Fatigue [Unknown]
  - Therapeutic product effect increased [Unknown]
  - Product administration error [Unknown]
  - Dehydration [Unknown]

NARRATIVE: CASE EVENT DATE: 20240320
